FAERS Safety Report 16828021 (Version 1)
Quarter: 2019Q3

REPORT INFORMATION
  Report Type: Report from Study
  Country: None (occurrence: US)
  Receive Date: 20190919
  Receipt Date: 20190919
  Transmission Date: 20191005
  Serious: Yes (Other)
  Sender: FDA-Public Use
  Company Number: US-ABBVIE-19K-163-2928218-00

PATIENT
  Sex: Male

DRUGS (2)
  1. TYLENOL [Concomitant]
     Active Substance: ACETAMINOPHEN
     Indication: PRODUCT USED FOR UNKNOWN INDICATION
     Route: 065
  2. HUMIRA [Suspect]
     Active Substance: ADALIMUMAB
     Indication: CROHN^S DISEASE
     Route: 058

REACTIONS (8)
  - Abdominal discomfort [Unknown]
  - Therapeutic response shortened [Unknown]
  - Inflammation [Recovered/Resolved]
  - Gastric disorder [Unknown]
  - Swelling [Recovered/Resolved]
  - Crohn^s disease [Not Recovered/Not Resolved]
  - Nausea [Unknown]
  - Hypoaesthesia [Unknown]
